FAERS Safety Report 13369438 (Version 1)
Quarter: 2017Q1

REPORT INFORMATION
  Report Type: Spontaneous
  Country: US (occurrence: US)
  Receive Date: 20170324
  Receipt Date: 20170324
  Transmission Date: 20170429
  Serious: Yes (Disabling)
  Sender: FDA-Public Use
  Company Number: None

PATIENT
  Age: 54 Year
  Sex: Female
  Weight: 76.5 kg

DRUGS (3)
  1. NAOPRIXIN [Concomitant]
  2. CIPROFLOXACIN HCL 500 MG TAB [Suspect]
     Active Substance: CIPROFLOXACIN HYDROCHLORIDE
     Indication: URINARY TRACT INFECTION
     Route: 048
     Dates: start: 20161115, end: 20161121
  3. ALEVE [Concomitant]
     Active Substance: NAPROXEN SODIUM

REACTIONS (6)
  - Ligament sprain [None]
  - Peripheral swelling [None]
  - Abasia [None]
  - Limb discomfort [None]
  - Burning sensation [None]
  - Muscle strain [None]

NARRATIVE: CASE EVENT DATE: 20170106
